FAERS Safety Report 13825806 (Version 1)
Quarter: 2017Q3

REPORT INFORMATION
  Report Type: Spontaneous
  Country: US (occurrence: US)
  Receive Date: 20170802
  Receipt Date: 20170802
  Transmission Date: 20171127
  Serious: Yes (Other)
  Sender: FDA-Public Use
  Company Number: PHEH2017US023147

PATIENT
  Age: 81 Year
  Sex: Female
  Weight: 79.38 kg

DRUGS (8)
  1. BENEFIBER [Concomitant]
     Active Substance: STARCH, WHEAT
     Indication: ANAL INCONTINENCE
     Dosage: 1/2 TO 3/4 TEASPOON, MIXED WITH COFFEE
     Route: 065
  2. AMLODIPINE [Concomitant]
     Active Substance: AMLODIPINE BESYLATE
     Indication: HYPERTENSION
     Dosage: 10 MG, BID
     Route: 065
     Dates: start: 20170703
  3. LEVOTHYROXINE. [Concomitant]
     Active Substance: LEVOTHYROXINE
     Indication: PRODUCT USED FOR UNKNOWN INDICATION
     Dosage: 150 UG, QD
     Route: 065
     Dates: start: 1961
  4. SERTRALINE [Concomitant]
     Active Substance: SERTRALINE HYDROCHLORIDE
     Indication: PRODUCT USED FOR UNKNOWN INDICATION
     Dosage: 50 MG/75 MG
     Route: 065
  5. TYNELOL [Concomitant]
     Active Substance: ACETAMINOPHEN
     Indication: PRODUCT USED FOR UNKNOWN INDICATION
     Route: 065
  6. ADVIL [Suspect]
     Active Substance: IBUPROFEN
     Indication: PRODUCT USED FOR UNKNOWN INDICATION
     Dosage: 2 DF, PRN
     Route: 065
     Dates: start: 20170627, end: 20170705
  7. LOPERAMIDE [Concomitant]
     Active Substance: LOPERAMIDE
     Indication: BOWEL MOVEMENT IRREGULARITY
     Dosage: 2 DF, UNK
     Route: 065
     Dates: start: 1993
  8. DIOVAN [Suspect]
     Active Substance: VALSARTAN
     Indication: PRODUCT USED FOR UNKNOWN INDICATION
     Dosage: 80 MG, QD
     Route: 065

REACTIONS (13)
  - Intervertebral disc protrusion [Unknown]
  - Pelvic fracture [Unknown]
  - Fall [Unknown]
  - Cough [Recovered/Resolved]
  - Laryngitis [Unknown]
  - Rib fracture [Unknown]
  - Incorrect dose administered [Recovered/Resolved]
  - Weight increased [Unknown]
  - Head injury [Unknown]
  - Drug hypersensitivity [Unknown]
  - Angioedema [Unknown]
  - Urticaria [Unknown]
  - Dysphonia [Unknown]

NARRATIVE: CASE EVENT DATE: 20170627
